FAERS Safety Report 6286802-8 (Version None)
Quarter: 2009Q3

REPORT INFORMATION
  Report Type: 
  Country: None (occurrence: None)
  Receive Date: 20090728
  Receipt Date: 20090717
  Transmission Date: 20100115
  Serious: Yes (Life-Threatening, Hospitalization)
  Sender: FDA-Public Use
  Company Number: CA-AVENTIS-200912891GDDC

PATIENT
  Age: 55 Year
  Sex: Male

DRUGS (4)
  1. LANTUS [Suspect]
     Route: 058
     Dates: start: 20070301
  2. AUTOPEN 24 [Suspect]
  3. NPH INSULIN [Concomitant]
     Route: 058
  4. NOVORAPID [Concomitant]
     Dosage: DOSE: 1.5U/10 G CARBOHYDRATES
     Route: 058

REACTIONS (3)
  - HYPERGLYCAEMIA [None]
  - KETOACIDOSIS [None]
  - PRODUCT QUALITY ISSUE [None]
